FAERS Safety Report 10570142 (Version 1)
Quarter: 2014Q4

REPORT INFORMATION
  Report Type: Spontaneous
  Country: US (occurrence: None)
  Receive Date: 20141106
  Receipt Date: 20141106
  Transmission Date: 20150529
  Serious: Yes (Other)
  Sender: FDA-Public Use
  Company Number: None

PATIENT
  Age: 52 Year
  Sex: Female
  Weight: 47.63 kg

DRUGS (1)
  1. LYRICA [Suspect]
     Active Substance: PREGABALIN
     Indication: NEURALGIA
     Dosage: 1 PILL THREE TIMES DAILY
     Dates: start: 20140815, end: 20141105

REACTIONS (6)
  - Disease recurrence [None]
  - Skin disorder [None]
  - Skin ulcer [None]
  - Impaired healing [None]
  - Wound complication [None]
  - Pruritus [None]

NARRATIVE: CASE EVENT DATE: 20140915
